FAERS Safety Report 18626851 (Version 1)
Quarter: 2020Q4

REPORT INFORMATION
  Report Type: Other
  Country: FR (occurrence: FR)
  Receive Date: 20201217
  Receipt Date: 20201217
  Transmission Date: 20210114
  Serious: Yes (Hospitalization)
  Sender: FDA-Public Use
  Company Number: FR-APOTEX-2020AP024431

PATIENT
  Age: 36 Year
  Sex: Female

DRUGS (1)
  1. DEROXAT [Suspect]
     Active Substance: PAROXETINE HYDROCHLORIDE
     Indication: DEPRESSION
     Dosage: 20 MG, QD
     Route: 048
     Dates: start: 20200812, end: 20201105

REACTIONS (1)
  - Ankle fracture [Recovering/Resolving]

NARRATIVE: CASE EVENT DATE: 20201105
